FAERS Safety Report 5142331-6 (Version None)
Quarter: 2006Q4

REPORT INFORMATION
  Report Type: 
  Country: None (occurrence: None)
  Receive Date: 20061102
  Receipt Date: 20061024
  Transmission Date: 20070319
  Serious: Yes (Other)
  Sender: FDA-Public Use
  Company Number: BR-ROCHE-468831

PATIENT
  Sex: Female

DRUGS (2)
  1. ROACUTAN [Suspect]
     Route: 048
     Dates: end: 20060712
  2. CONTRACEPTIVE NOS [Concomitant]
     Indication: CONTRACEPTION
     Dates: end: 20060815

REACTIONS (3)
  - NO ADVERSE EFFECT [None]
  - PREGNANCY [None]
  - UNINTENDED PREGNANCY [None]
